FAERS Safety Report 9947583 (Version 1)
Quarter: 2014Q1

REPORT INFORMATION
  Report Type: Report from Study
  Country: US (occurrence: US)
  Receive Date: 20140303
  Receipt Date: 20140303
  Transmission Date: 20141002
  Serious: No
  Sender: FDA-Public Use
  Company Number: US-ABBVIE-13P-163-1057439-00

PATIENT
  Age: 32 Year
  Sex: Female

DRUGS (8)
  1. HUMIRA [Suspect]
     Indication: RHEUMATOID ARTHRITIS
     Dates: start: 20130104
  2. LEVOTHYROXINE [Concomitant]
     Indication: HYPOTHYROIDISM
  3. METFORMIN [Concomitant]
     Indication: POLYCYSTIC OVARIES
     Dosage: 500 MG 2 TABS DAILY
  4. PROZAC [Concomitant]
     Indication: DEPRESSION
     Dosage: 1 TAB DAILY
  5. METHOTREXATE [Concomitant]
     Indication: RHEUMATOID ARTHRITIS
     Dosage: EVERY SATURDAY
  6. ASPIRIN [Concomitant]
     Indication: FACTOR V LEIDEN MUTATION
  7. FOLIC ACID [Concomitant]
     Indication: PRODUCT USED FOR UNKNOWN INDICATION
     Dosage: I TAB DAILY
  8. BENADRYL [Concomitant]
     Indication: PRODUCT USED FOR UNKNOWN INDICATION
     Dosage: AS NEEDED

REACTIONS (2)
  - Productive cough [Not Recovered/Not Resolved]
  - Nasopharyngitis [Not Recovered/Not Resolved]
